FAERS Safety Report 4992782-5 (Version None)
Quarter: 2006Q1

REPORT INFORMATION
  Report Type: 
  Country: None (occurrence: None)
  Receive Date: 20060313
  Receipt Date: 20051229
  Transmission Date: 20060701
  Serious: Yes (Hospitalization)
  Sender: FDA-Public Use
  Company Number: 2005-BP-13885RO

PATIENT
  Age: 78 Year
  Sex: Male
  Weight: 61.2 kg

DRUGS (7)
  1. LITHIUM CARBONATE [Suspect]
     Indication: BIPOLAR DISORDER
     Dosage: 300MG TU/TH/SA,450MG MO/WE/FR (300MG), PO
     Route: 048
     Dates: start: 20050620, end: 20050810
  2. CLOZARIL [Concomitant]
  3. ATIVAN [Concomitant]
  4. LEVOTHYROXINE SODIUM [Concomitant]
  5. HYTRIN [Concomitant]
  6. DILANTIN [Concomitant]
  7. ARICEPT [Concomitant]

REACTIONS (2)
  - DRUG LEVEL INCREASED [None]
  - THERAPEUTIC AGENT TOXICITY [None]
